FAERS Safety Report 19992549 (Version 8)
Quarter: 2023Q4

REPORT INFORMATION
  Report Type: Report from Study
  Country: US (occurrence: US)
  Receive Date: 20211025
  Receipt Date: 20231110
  Transmission Date: 20240110
  Serious: Yes (Hospitalization, Other)
  Sender: FDA-Public Use
  Company Number: US-TAKEDA-2021TUS064165

PATIENT
  Age: 58 Year
  Sex: Female

DRUGS (1)
  1. HUMAN IMMUNOGLOBULIN G [Suspect]
     Active Substance: HUMAN IMMUNOGLOBULIN G
     Indication: Primary immunodeficiency syndrome
     Dosage: 40 GRAM
     Route: 042
     Dates: end: 20231006

REACTIONS (17)
  - Brain neoplasm [Recovering/Resolving]
  - Intracranial pressure increased [Not Recovered/Not Resolved]
  - Systemic lupus erythematosus [Unknown]
  - Infusion related reaction [Unknown]
  - Pancreatic carcinoma [Unknown]
  - COVID-19 [Unknown]
  - Post procedural complication [Unknown]
  - Throat tightness [Unknown]
  - Urticaria [Unknown]
  - Headache [Not Recovered/Not Resolved]
  - Influenza like illness [Unknown]
  - Chronic sinusitis [Unknown]
  - Illness [Unknown]
  - Eustachian tube disorder [Unknown]
  - Blood magnesium decreased [Unknown]
  - Pain [Unknown]
  - Blood pressure increased [Unknown]

NARRATIVE: CASE EVENT DATE: 20211015
